FAERS Safety Report 4264316-4 (Version None)
Quarter: 2004Q1

REPORT INFORMATION
  Report Type: 
  Country: None (occurrence: None)
  Receive Date: 20040102
  Receipt Date: 20031222
  Transmission Date: 20041129
  Serious: Yes (Hospitalization)
  Sender: FDA-Public Use
  Company Number: 03P-163-0245659-00

PATIENT
  Age: 41 Year
  Sex: Female

DRUGS (12)
  1. HUMIRA [Suspect]
     Indication: RHEUMATOID ARTHRITIS
     Dosage: 40 MG, 1 IN 2 WK, SUBCUTANEOUS
     Route: 058
     Dates: start: 20030730
  2. POTASSIUM CHLORIDE [Concomitant]
  3. FUROSEMIDE [Concomitant]
  4. PREDNISONE [Concomitant]
  5. CYCLOBENZAPRINE HYDROCHLORIDE [Concomitant]
  6. SPIRONOLACTONE [Concomitant]
  7. GOLD [Concomitant]
  8. OMEPRAZOLE [Concomitant]
  9. PROPACET 100 [Concomitant]
  10. VICODIN [Concomitant]
  11. CO-DIOVAN [Concomitant]
  12. COMBIVENT [Concomitant]

REACTIONS (5)
  - CONDITION AGGRAVATED [None]
  - DIABETES MELLITUS [None]
  - DYSPNOEA [None]
  - PANCREATIC CYST [None]
  - VOCAL CORD POLYP [None]
